FAERS Safety Report 8863203 (Version 3)
Quarter: 2014Q1

REPORT INFORMATION
  Report Type: Spontaneous
  Country: US (occurrence: US)
  Receive Date: 20121025
  Receipt Date: 20140108
  Transmission Date: 20141002
  Serious: No
  Sender: FDA-Public Use
  Company Number: US-VERTEX PHARMACEUTICAL INC.-2012-023449

PATIENT
  Age: 56 Year
  Sex: Male
  Weight: 90.7 kg

DRUGS (4)
  1. INCIVEK [Suspect]
     Indication: HEPATITIS C
     Dosage: 750 MG, TID
     Route: 048
     Dates: start: 20121009
  2. INCIVEK [Suspect]
     Dosage: 1125 MG, QD
     Route: 048
  3. RIBAVIRIN [Suspect]
     Indication: HEPATITIS C
     Dosage: 600 MG, BID
     Route: 048
     Dates: start: 20121009
  4. PEGASYS [Suspect]
     Indication: HEPATITIS C
     Dosage: 180 ?G, QW
     Route: 058
     Dates: start: 20121009

REACTIONS (3)
  - Drug dose omission [Recovered/Resolved]
  - Hepatitis C [Unknown]
  - Anaemia [Unknown]
